FAERS Safety Report 5594636-2 (Version None)
Quarter: 2008Q1

REPORT INFORMATION
  Report Type: 
  Country: None (occurrence: None)
  Receive Date: 20080117
  Receipt Date: 20080111
  Transmission Date: 20080703
  Serious: Yes (Hospitalization)
  Sender: FDA-Public Use
  Company Number: FR-AVENTIS-200810137FR

PATIENT
  Age: 22 Year
  Sex: Male

DRUGS (3)
  1. ARAVA [Suspect]
     Route: 048
     Dates: start: 20061101, end: 20071004
  2. KINERET [Concomitant]
     Route: 058
     Dates: start: 20060201, end: 20071004
  3. CORTICOSTEROIDS [Concomitant]

REACTIONS (5)
  - ALANINE AMINOTRANSFERASE INCREASED [None]
  - BLOOD ALKALINE PHOSPHATASE INCREASED [None]
  - CHOLESTASIS [None]
  - HEPATIC ENZYME INCREASED [None]
  - MEDICATION ERROR [None]
